FAERS Safety Report 9597524 (Version 1)
Quarter: 2013Q4

REPORT INFORMATION
  Report Type: Spontaneous
  Country: US (occurrence: US)
  Receive Date: 20131004
  Receipt Date: 20131004
  Transmission Date: 20140711
  Serious: No
  Sender: FDA-Public Use
  Company Number: US-AMGEN-USASP2013019583

PATIENT
  Age: 57 Year
  Sex: Female
  Weight: 86.17 kg

DRUGS (3)
  1. ENBREL [Suspect]
     Indication: PRODUCT USED FOR UNKNOWN INDICATION
     Dosage: 50 MG, QWK
     Route: 058
  2. LODINE [Concomitant]
     Dosage: 400 MG, UNK
  3. CALTRATE + D                       /00944201/ [Concomitant]
     Dosage: UNK,600

REACTIONS (2)
  - Pruritus [Unknown]
  - Palpitations [Unknown]
